FAERS Safety Report 8960449 (Version 1)
Quarter: 2012Q4

REPORT INFORMATION
  Report Type: Spontaneous
  Country: US (occurrence: None)
  Receive Date: 20121211
  Receipt Date: 20121211
  Transmission Date: 20130627
  Serious: Yes (Other)
  Sender: FDA-Public Use
  Company Number: None

PATIENT
  Age: 61 Year
  Sex: Female
  Weight: 47.63 kg

DRUGS (3)
  1. ANASTROZOLE [Suspect]
     Indication: BREAST CANCER
     Dates: start: 201007, end: 201207
  2. ANASTROZOLE [Suspect]
     Indication: BREAST CANCER
  3. ANASTROZOLE [Suspect]
     Indication: BREAST CANCER
     Dates: start: 201207, end: 201208

REACTIONS (4)
  - Product substitution issue [None]
  - Hair growth abnormal [None]
  - Alopecia [None]
  - Alopecia [None]
